FAERS Safety Report 25459374 (Version 3)
Quarter: 2025Q3

REPORT INFORMATION
  Report Type: Report from Study
  Country: TW (occurrence: TW)
  Receive Date: 20250620
  Receipt Date: 20250820
  Transmission Date: 20251021
  Serious: Yes (Hospitalization)
  Sender: BIOGEN
  Company Number: TW-BIOGEN-2025BI01314197

PATIENT
  Age: 42 Year
  Sex: Female
  Weight: 52 kg

DRUGS (2)
  1. TECFIDERA [Suspect]
     Active Substance: DIMETHYL FUMARATE
     Indication: Multiple sclerosis
     Route: 050
     Dates: start: 20220628, end: 20250811
  2. TECFIDERA [Suspect]
     Active Substance: DIMETHYL FUMARATE
     Indication: Multiple sclerosis
     Route: 050
     Dates: start: 20220621, end: 20220627

REACTIONS (3)
  - Muscular weakness [Not Recovered/Not Resolved]
  - Micturition disorder [Recovered/Resolved]
  - Drug ineffective [Unknown]

NARRATIVE: CASE EVENT DATE: 20250521
